FAERS Safety Report 17976523 (Version 2)
Quarter: 2020Q3

REPORT INFORMATION
  Report Type: Report from Study
  Country: KR (occurrence: KR)
  Receive Date: 20200703
  Receipt Date: 20200706
  Transmission Date: 20201103
  Serious: Yes (Hospitalization, Other)
  Sender: FDA-Public Use
  Company Number: KR-ROCHE-2371710

PATIENT
  Age: 66 Year
  Sex: Male
  Weight: 61 kg

DRUGS (53)
  1. CYCLOPHOSPHAMIDE. [Suspect]
     Active Substance: CYCLOPHOSPHAMIDE
     Route: 042
     Dates: start: 20190624, end: 20190624
  2. VINCRISTINE [Suspect]
     Active Substance: VINCRISTINE
     Route: 042
     Dates: start: 20190715, end: 20190715
  3. TYLENOL ER [Concomitant]
     Active Substance: ACETAMINOPHEN
     Route: 048
     Dates: start: 20200401
  4. BANAN [Concomitant]
     Active Substance: CEFPODOXIME PROXETIL
     Route: 048
     Dates: start: 20190704, end: 20190710
  5. RITUXIMAB. [Suspect]
     Active Substance: RITUXIMAB
     Route: 058
     Dates: start: 20190513, end: 20190513
  6. VINCRISTINE [Suspect]
     Active Substance: VINCRISTINE
     Route: 042
     Dates: start: 20190624, end: 20190624
  7. THRUPAS [Concomitant]
     Active Substance: SILODOSIN
     Indication: BENIGN PROSTATIC HYPERPLASIA
     Route: 048
     Dates: start: 20190226
  8. BETMIGA [Concomitant]
     Active Substance: MIRABEGRON
     Indication: BENIGN PROSTATIC HYPERPLASIA
     Route: 048
     Dates: start: 20190619
  9. RITUXIMAB. [Suspect]
     Active Substance: RITUXIMAB
     Route: 058
     Dates: start: 20190715
  10. PREDNISONE. [Suspect]
     Active Substance: PREDNISONE
     Route: 048
     Dates: start: 20190715, end: 20190715
  11. CYTOTEC [Concomitant]
     Active Substance: MISOPROSTOL
     Dosage: RECEIVED SAME DOSE ON 22/APR/2019, 13/MAY/2020 AND 03/JUN/2020, 24/JUN/2020, 15/JUL/2019
     Route: 048
     Dates: start: 20190603, end: 20190607
  12. DEXAMETHASONE. [Concomitant]
     Active Substance: DEXAMETHASONE
     Route: 042
     Dates: start: 20200401
  13. TAZOPERAN [Concomitant]
     Route: 042
     Dates: start: 20190701, end: 20190703
  14. HYSONE [HYDROCORTISONE] [Concomitant]
     Route: 048
     Dates: start: 20190701, end: 20190701
  15. TAPOCIN [Concomitant]
     Route: 042
     Dates: start: 20190702, end: 20190705
  16. RITUXIMAB. [Suspect]
     Active Substance: RITUXIMAB
     Indication: NON-HODGKIN^S LYMPHOMA
     Route: 042
     Dates: start: 20190401, end: 20190401
  17. RITUXIMAB. [Suspect]
     Active Substance: RITUXIMAB
     Indication: NON-HODGKIN^S LYMPHOMA
     Route: 058
     Dates: start: 20190422, end: 20190422
  18. RITUXIMAB. [Suspect]
     Active Substance: RITUXIMAB
     Route: 058
     Dates: start: 20190624, end: 20190624
  19. DOXORUBICIN [Suspect]
     Active Substance: DOXORUBICIN
     Route: 042
     Dates: start: 20190624, end: 20190624
  20. PREDNISONE. [Suspect]
     Active Substance: PREDNISONE
     Route: 048
     Dates: start: 20190624, end: 20190628
  21. CIPROFLOXACIN. [Concomitant]
     Active Substance: CIPROFLOXACIN
     Dosage: RECEIVED A SAME DOSE ON 22/APR/2019, 13/MAY/2019 AND 03/JUN/2019, 24/JUN/2019, 15/JUL/2019
     Route: 048
     Dates: start: 20190603, end: 20190609
  22. BETMIGA [Concomitant]
     Active Substance: MIRABEGRON
     Route: 048
     Dates: start: 20190619
  23. NEULASTA [Concomitant]
     Active Substance: PEGFILGRASTIM
     Dosage: RECEIVED SAME DOSE ON 14/MAY/2020
     Route: 058
     Dates: start: 20200604, end: 20200604
  24. CYCLOPHOSPHAMIDE. [Suspect]
     Active Substance: CYCLOPHOSPHAMIDE
     Route: 042
     Dates: start: 20190715, end: 20190715
  25. FLUNAZOLE [Concomitant]
     Active Substance: FLUCONAZOLE
     Dosage: RECEIVED SAME DOSE ON 22/MAY/2019, 13/MAY/2019. 03/JUN/2019, 24/JUN/2019, 01/JUL/2019, 15/JUL/2019
     Route: 048
     Dates: start: 20190422, end: 20190603
  26. LASIX [Concomitant]
     Active Substance: FUROSEMIDE
     Route: 042
     Dates: start: 20190701, end: 20190701
  27. CRAVIT [Concomitant]
     Active Substance: LEVOFLOXACIN
     Route: 042
     Dates: start: 20190701, end: 20190705
  28. SODIUM BICARBONATE. [Concomitant]
     Active Substance: SODIUM BICARBONATE
     Route: 065
     Dates: start: 20190701, end: 20190705
  29. TANTUM [BENZYDAMINE HYDROCHLORIDE] [Concomitant]
     Route: 065
     Dates: start: 20190701, end: 20190705
  30. CODEINE [Concomitant]
     Active Substance: CODEINE
     Route: 048
     Dates: start: 20190704, end: 20190715
  31. CYCLOPHOSPHAMIDE. [Suspect]
     Active Substance: CYCLOPHOSPHAMIDE
     Route: 042
     Dates: start: 20190603, end: 20190603
  32. DOXORUBICIN [Suspect]
     Active Substance: DOXORUBICIN
     Route: 042
     Dates: start: 20190513, end: 20190513
  33. DOXORUBICIN [Suspect]
     Active Substance: DOXORUBICIN
     Route: 042
     Dates: start: 20190603, end: 20190603
  34. DOXORUBICIN [Suspect]
     Active Substance: DOXORUBICIN
     Route: 042
     Dates: start: 20190715
  35. VINCRISTINE [Suspect]
     Active Substance: VINCRISTINE
     Indication: NON-HODGKIN^S LYMPHOMA
     Route: 042
     Dates: start: 20190422, end: 20190422
  36. ALOXI [Concomitant]
     Active Substance: PALONOSETRON HYDROCHLORIDE
     Dosage: RECEIVED SAME DOSE ON 22/APR/2019, 13/MAY/2019, 03/JUN/2019, 24/JUN/2019, 15/JUL/2019
     Route: 042
     Dates: start: 20190603, end: 20190603
  37. PENIRAMIN [Concomitant]
     Route: 042
     Dates: start: 20200401
  38. TYLENOL ER [Concomitant]
     Active Substance: ACETAMINOPHEN
     Route: 048
     Dates: start: 20190701, end: 20190701
  39. NEULASTA [Concomitant]
     Active Substance: PEGFILGRASTIM
     Dosage: RECEIVED SAME DOSE ON 14/MAY/2020, 25/JUN/2020,15/JUL/2019
     Route: 058
     Dates: start: 20190423, end: 20190423
  40. SEPTRIN [Concomitant]
     Active Substance: SULFAMETHOXAZOLE\TRIMETHOPRIM
     Route: 048
     Dates: start: 20190701, end: 20190701
  41. LEVOTUSS [Concomitant]
     Active Substance: LEVODROPROPIZINE
     Route: 048
     Dates: start: 20190704, end: 20190715
  42. RITUXIMAB. [Suspect]
     Active Substance: RITUXIMAB
     Route: 058
     Dates: start: 20190603, end: 20190603
  43. CYCLOPHOSPHAMIDE. [Suspect]
     Active Substance: CYCLOPHOSPHAMIDE
     Route: 042
     Dates: start: 20190513, end: 20190513
  44. DOXORUBICIN [Suspect]
     Active Substance: DOXORUBICIN
     Indication: NON-HODGKIN^S LYMPHOMA
     Route: 042
     Dates: start: 20190422, end: 20190422
  45. VINCRISTINE [Suspect]
     Active Substance: VINCRISTINE
     Route: 042
     Dates: start: 20190513, end: 20190513
  46. VINCRISTINE [Suspect]
     Active Substance: VINCRISTINE
     Route: 042
     Dates: start: 20190603, end: 20190603
  47. PREDNISONE. [Suspect]
     Active Substance: PREDNISONE
     Indication: NON-HODGKIN^S LYMPHOMA
     Route: 048
     Dates: start: 20190422, end: 20190422
  48. PREDNISONE. [Suspect]
     Active Substance: PREDNISONE
     Route: 048
     Dates: start: 20190513, end: 20190517
  49. PREDNISONE. [Suspect]
     Active Substance: PREDNISONE
     Dosage: DOSE INCREASED
     Route: 048
     Dates: start: 20190603, end: 20190607
  50. EMEND [Concomitant]
     Active Substance: APREPITANT
     Dosage: RECEIVED SAME DOSE ON 22/APR/2019 AND 13/MAY/2019, 03/JUN/2019, 24/JUN/2019, 15/JUL/2019
     Route: 042
     Dates: start: 20190603, end: 20190603
  51. ESOMEPRAZOLE. [Concomitant]
     Active Substance: ESOMEPRAZOLE MAGNESIUM
     Route: 048
     Dates: start: 20190701, end: 20190701
  52. HEPARIN [Concomitant]
     Active Substance: HEPARIN SODIUM
     Dosage: RECEIVED A SAME DOSE ON 13/MAY/2019 AND 3/JUN/2019, 24/JUN/2019, 15/JUL/2019
     Route: 042
     Dates: start: 20190422, end: 20190422
  53. CYCLOPHOSPHAMIDE. [Suspect]
     Active Substance: CYCLOPHOSPHAMIDE
     Indication: NON-HODGKIN^S LYMPHOMA
     Route: 042
     Dates: start: 20190422, end: 20190422

REACTIONS (3)
  - Septic shock [Recovered/Resolved]
  - Bone pain [Recovered/Resolved]
  - Febrile neutropenia [Recovered/Resolved]

NARRATIVE: CASE EVENT DATE: 20190630
